FAERS Safety Report 10833026 (Version 1)
Quarter: 2015Q1

REPORT INFORMATION
  Report Type: Report from Study
  Country: US (occurrence: US)
  Receive Date: 20150219
  Receipt Date: 20150219
  Transmission Date: 20150721
  Serious: No
  Sender: FDA-Public Use
  Company Number: US-ABBVIE-14P-163-1200065-00

PATIENT
  Age: 56 Year
  Sex: Female
  Weight: 76.27 kg

DRUGS (2)
  1. HUMIRA [Suspect]
     Active Substance: ADALIMUMAB
     Indication: RHEUMATOID ARTHRITIS
     Dosage: 3 DOSES
     Dates: start: 20120815, end: 20120918
  2. ENBREL [Suspect]
     Active Substance: ETANERCEPT
     Indication: RHEUMATOID ARTHRITIS
     Dates: start: 20121026, end: 20121102

REACTIONS (3)
  - Hypersensitivity [Unknown]
  - Injection site erythema [Recovered/Resolved with Sequelae]
  - Injection site erythema [Recovered/Resolved]

NARRATIVE: CASE EVENT DATE: 201209
